FAERS Safety Report 8248318-9 (Version None)
Quarter: 2012Q1

REPORT INFORMATION
  Report Type: 
  Country: None (occurrence: None)
  Receive Date: 20120330
  Receipt Date: 20120322
  Transmission Date: 20120608
  Serious: Yes (Other)
  Sender: FDA-Public Use
  Company Number: JP-FRI-1000028673

PATIENT
  Age: 78 Year
  Sex: Male

DRUGS (3)
  1. MEMANTINE [Suspect]
     Dosage: 5 MG
     Dates: start: 20120116, end: 20120101
  2. SEROQUEL [Concomitant]
  3. MEMANTINE [Suspect]
     Dosage: 10 MG
     Dates: start: 20120101, end: 20120130

REACTIONS (1)
  - LIVER FUNCTION TEST ABNORMAL [None]
